FAERS Safety Report 7601767-1 (Version None)
Quarter: 2011Q3

REPORT INFORMATION
  Report Type: 
  Country: None (occurrence: None)
  Receive Date: 20110711
  Receipt Date: 20110704
  Transmission Date: 20111222
  Serious: Yes (Hospitalization)
  Sender: FDA-Public Use
  Company Number: FR-US-EMD SERONO, INC.-220002N07FRA

PATIENT
  Sex: Male
  Weight: 69 kg

DRUGS (15)
  1. HYDROCORTISONE [Concomitant]
     Indication: BLOOD CORTICOTROPHIN DECREASED
     Route: 048
     Dates: start: 20050524
  2. ANAFRANIL [Concomitant]
     Indication: DEPRESSION
     Route: 048
     Dates: start: 19980101
  3. SAIZEN [Suspect]
     Route: 058
     Dates: start: 20070419, end: 20071211
  4. DEPAKENE [Concomitant]
     Indication: CONVULSION
     Route: 048
     Dates: start: 19960101, end: 20071101
  5. PERINDOPRIL ERBUMINE [Concomitant]
     Indication: HYPERTENSION
     Route: 048
     Dates: start: 20060913
  6. SAIZEN [Suspect]
     Route: 058
     Dates: start: 20051218, end: 20060717
  7. LEVOTHYROXINE SODIUM [Concomitant]
     Indication: HYPOTHYROIDISM
     Route: 048
     Dates: start: 20060314, end: 20071101
  8. CYTOMEL [Concomitant]
     Indication: HYPOTHYROIDISM
     Route: 048
     Dates: start: 20060314
  9. DEPAKENE [Concomitant]
     Route: 048
     Dates: start: 20071101
  10. SAIZEN [Suspect]
     Route: 058
     Dates: start: 20060718, end: 20070418
  11. SAIZEN [Suspect]
     Indication: HYPOPITUITARISM
     Route: 058
     Dates: start: 20051121, end: 20051217
  12. LEVOTHYROXINE SODIUM [Concomitant]
     Route: 048
     Dates: start: 20071101
  13. LAMICTAL [Concomitant]
     Indication: CONVULSION
     Route: 048
     Dates: start: 20040101
  14. LODALES [Concomitant]
     Indication: DYSLIPIDAEMIA
     Route: 048
     Dates: start: 20040101
  15. EUROBIOL [Concomitant]
     Indication: DIARRHOEA
     Route: 048
     Dates: start: 20060901

REACTIONS (3)
  - BALANCE DISORDER [None]
  - FALL [None]
  - VERTIGO [None]
